FAERS Safety Report 16081757 (Version 1)
Quarter: 2019Q1

REPORT INFORMATION
  Report Type: Spontaneous
  Country: US (occurrence: US)
  Receive Date: 20190316
  Receipt Date: 20190316
  Transmission Date: 20190418
  Serious: Yes (Death)
  Sender: FDA-Public Use
  Company Number: PHEH2019US011710

PATIENT
  Sex: Male

DRUGS (3)
  1. GLEEVEC [Suspect]
     Active Substance: IMATINIB MESYLATE
     Indication: GRAFT VERSUS HOST DISEASE
  2. GLEEVEC [Suspect]
     Active Substance: IMATINIB MESYLATE
     Indication: COMPLICATIONS OF BONE MARROW TRANSPLANT
  3. GLEEVEC [Suspect]
     Active Substance: IMATINIB MESYLATE
     Indication: SKIN DISORDER
     Dosage: 300 MG, QD
     Route: 048

REACTIONS (2)
  - Death [Fatal]
  - Product use in unapproved indication [Unknown]
